FAERS Safety Report 16934956 (Version 2)
Quarter: 2019Q4

REPORT INFORMATION
  Report Type: Spontaneous
  Country: UZ (occurrence: UZ)
  Receive Date: 20191018
  Receipt Date: 20191029
  Transmission Date: 20200122
  Serious: Yes (Disabling, Other)
  Sender: FDA-Public Use
  Company Number: UZ-JNJFOC-20191016666

PATIENT
  Age: 46 Year
  Sex: Male
  Weight: 84 kg

DRUGS (12)
  1. BEDAQUILINE [Suspect]
     Active Substance: BEDAQUILINE
     Indication: TUBERCULOSIS
     Route: 048
     Dates: start: 20190629
  2. PYRIDOXINE [Concomitant]
     Active Substance: PYRIDOXINE
     Indication: NUTRITIONAL SUPPLEMENTATION
     Route: 065
     Dates: start: 20190629
  3. LEVOFLOXACIN. [Suspect]
     Active Substance: LEVOFLOXACIN
     Indication: TUBERCULOSIS
     Route: 048
     Dates: start: 20190629
  4. CYCLOSERINE. [Suspect]
     Active Substance: CYCLOSERINE
     Indication: TUBERCULOSIS
     Route: 048
     Dates: start: 20190629
  5. CLOFAZIMINE [Suspect]
     Active Substance: CLOFAZIMINE
     Indication: TUBERCULOSIS
     Route: 048
     Dates: start: 20190629
  6. AMOXICLAV [Suspect]
     Active Substance: AMOXICILLIN\CLAVULANATE POTASSIUM
     Indication: TUBERCULOSIS
     Route: 048
     Dates: start: 20190629
  7. IMIPENEM [Suspect]
     Active Substance: IMIPENEM
     Indication: TUBERCULOSIS
     Route: 042
     Dates: start: 20190629
  8. CEFTRIAXONE. [Concomitant]
     Active Substance: CEFTRIAXONE
     Indication: OTITIS MEDIA CHRONIC
     Route: 042
     Dates: start: 20190911, end: 20190915
  9. LINEZOLID. [Suspect]
     Active Substance: LINEZOLID
     Indication: TUBERCULOSIS
     Route: 048
     Dates: start: 20190629
  10. VITAMIN B-COMPLEX [Concomitant]
     Active Substance: DEXPANTHENOL\NIACINAMIDE\PYRIDOXINE HYDROCHLORIDE\RIBOFLAVIN 5^-PHOSPHATE SODIUM\THIAMINE HYDROCHLORIDE
     Indication: PRODUCT USED FOR UNKNOWN INDICATION
     Dosage: 1 AMP
     Route: 030
     Dates: start: 20190911, end: 20190919
  11. INSULIN [Concomitant]
     Active Substance: INSULIN NOS
     Indication: DIABETES MELLITUS
     Dosage: 22 UNITS
     Route: 058
     Dates: start: 201906
  12. CIPROLET                           /00697202/ [Concomitant]
     Indication: OTITIS MEDIA CHRONIC
     Route: 065
     Dates: start: 20190911, end: 20190915

REACTIONS (4)
  - Hypoacusis [Not Recovered/Not Resolved]
  - Otitis media chronic [Unknown]
  - Off label use [Unknown]
  - Incorrect dose administered [Unknown]

NARRATIVE: CASE EVENT DATE: 20190827
